FAERS Safety Report 11825021 (Version 1)
Quarter: 2015Q4

REPORT INFORMATION
  Report Type: Report from Study
  Country: BR (occurrence: BR)
  Receive Date: 20151211
  Receipt Date: 20151211
  Transmission Date: 20160305
  Serious: Yes (Other)
  Sender: FDA-Public Use
  Company Number: PHHY2015BR123642

PATIENT
  Sex: Female
  Weight: 31 kg

DRUGS (2)
  1. EXJADE [Suspect]
     Active Substance: DEFERASIROX
     Dosage: 1 DF, QOD
     Route: 065
  2. EXJADE [Suspect]
     Active Substance: DEFERASIROX
     Indication: SICKLE CELL ANAEMIA
     Dosage: 1 DF, QD
     Route: 065

REACTIONS (5)
  - Abdominal pain [Unknown]
  - Wrong technique in product usage process [Unknown]
  - Off label use [Unknown]
  - Malaise [Unknown]
  - Dysentery [Recovered/Resolved]
